FAERS Safety Report 20384882 (Version 2)
Quarter: 2022Q1

REPORT INFORMATION
  Report Type: Spontaneous
  Country: US (occurrence: US)
  Receive Date: 20220127
  Receipt Date: 20220310
  Transmission Date: 20220423
  Serious: Yes (Death, Other)
  Sender: FDA-Public Use
  Company Number: US-BIOMARINAP-US-2022-141060

PATIENT
  Age: 22 Year
  Sex: Male
  Weight: 40 kg

DRUGS (1)
  1. VIMIZIM [Suspect]
     Active Substance: ELOSULFASE ALFA
     Indication: Mucopolysaccharidosis IV
     Dosage: 80 MILLIGRAM, QW
     Route: 042
     Dates: start: 20140301

REACTIONS (2)
  - Craniocerebral injury [Fatal]
  - Spinal cord injury [Unknown]

NARRATIVE: CASE EVENT DATE: 20220124
